APPROVED DRUG PRODUCT: CARBOPLATIN
Active Ingredient: CARBOPLATIN
Strength: 450MG/45ML (10MG/ML)
Dosage Form/Route: INJECTABLE;INTRAVENOUS
Application: A077926 | Product #003 | TE Code: AP
Applicant: SUN PHARMACEUTICAL INDUSTRIES LTD
Approved: Sep 19, 2008 | RLD: No | RS: No | Type: RX